FAERS Safety Report 17538320 (Version 1)
Quarter: 2020Q1

REPORT INFORMATION
  Report Type: Spontaneous
  Country: US (occurrence: US)
  Receive Date: 20200313
  Receipt Date: 20200313
  Transmission Date: 20200409
  Serious: Yes (Hospitalization, Other)
  Sender: FDA-Public Use
  Company Number: None

PATIENT
  Age: 37 Year
  Sex: Female
  Weight: 55.35 kg

DRUGS (7)
  1. PROBIOTICS [Concomitant]
     Active Substance: PROBIOTICS NOS
  2. KAVA [Suspect]
     Active Substance: PIPER METHYSTICUM ROOT
     Indication: ANXIETY
     Dosage: ?          QUANTITY:2 TEASPOON(S);?
     Route: 048
     Dates: start: 20191101, end: 20200304
  3. KRATOM [Suspect]
     Active Substance: HERBALS\MITRAGYNINE
  4. VITAMINS B COMPLEX [Concomitant]
  5. TRILEPTOL [Concomitant]
  6. ATIVAN [Concomitant]
     Active Substance: LORAZEPAM
  7. PRISTIQ EXTENDED-RELEASE [Concomitant]
     Active Substance: DESVENLAFAXINE SUCCINATE

REACTIONS (6)
  - Weight decreased [None]
  - Quality of life decreased [None]
  - Speech disorder [None]
  - Impaired work ability [None]
  - Psychomotor skills impaired [None]
  - Movement disorder [None]

NARRATIVE: CASE EVENT DATE: 20200304
